FAERS Safety Report 10165876 (Version 1)
Quarter: 2014Q2

REPORT INFORMATION
  Report Type: Spontaneous
  Country: US (occurrence: US)
  Receive Date: 20140510
  Receipt Date: 20140510
  Transmission Date: 20141212
  Serious: No
  Sender: FDA-Public Use
  Company Number: US-BRISTOL-MYERS SQUIBB COMPANY-19958784

PATIENT
  Age: 50 Year
  Sex: Male
  Weight: 104.31 kg

DRUGS (2)
  1. BYDUREON [Suspect]
     Indication: TYPE 2 DIABETES MELLITUS
     Route: 058
     Dates: start: 20131116
  2. METFORMIN [Concomitant]

REACTIONS (5)
  - Drug ineffective [Recovered/Resolved]
  - Increased appetite [Recovered/Resolved]
  - Decreased appetite [Recovered/Resolved]
  - Injection site haemorrhage [Unknown]
  - Injection site nodule [Not Recovered/Not Resolved]
